FAERS Safety Report 9211867 (Version 1)
Quarter: 2013Q2

REPORT INFORMATION
  Report Type: Spontaneous
  Country: US (occurrence: US)
  Receive Date: 20130404
  Receipt Date: 20130404
  Transmission Date: 20140414
  Serious: No
  Sender: FDA-Public Use
  Company Number: US-AMGEN-USASP2013021582

PATIENT
  Age: 93 Year
  Sex: Female

DRUGS (2)
  1. ENBREL [Suspect]
     Indication: ERYTHRODERMIC PSORIASIS
     Dosage: 50 MG, 2 TIMES/WK
  2. ISONIAZID [Concomitant]
     Dosage: UNK

REACTIONS (1)
  - Tuberculin test positive [Unknown]
